FAERS Safety Report 4788277-4 (Version None)
Quarter: 2005Q4

REPORT INFORMATION
  Report Type: 
  Country: None (occurrence: None)
  Receive Date: 20051003
  Receipt Date: 20050919
  Transmission Date: 20060501
  Serious: Yes (Hospitalization)
  Sender: FDA-Public Use
  Company Number: 2005SP003031

PATIENT
  Age: 62 Year
  Sex: Female
  Weight: 75.6 kg

DRUGS (4)
  1. FORADIL [Suspect]
     Indication: CHRONIC OBSTRUCTIVE PULMONARY DISEASE
     Dosage: 12 UG; BID; INHALATION
     Route: 055
     Dates: start: 20050904, end: 20050913
  2. ARFORMOTEROL TARTRATE INHALATION SOLUTION (15 UG) [Suspect]
     Indication: CHRONIC OBSTRUCTIVE PULMONARY DISEASE
     Dosage: 15 UG; BID; INHALATION
     Route: 055
     Dates: start: 20050812, end: 20050825
  3. VITORIN [Concomitant]
  4. VALIUM [Concomitant]

REACTIONS (2)
  - BRONCHITIS ACUTE [None]
  - CONDITION AGGRAVATED [None]
